FAERS Safety Report 16342511 (Version 1)
Quarter: 2019Q2

REPORT INFORMATION
  Report Type: Report from Study
  Country: RU (occurrence: RU)
  Receive Date: 20190522
  Receipt Date: 20190522
  Transmission Date: 20190711
  Serious: Yes (Other)
  Sender: FDA-Public Use
  Company Number: RU-ASTRAZENECA-2019SE72336

PATIENT
  Age: 45 Year
  Sex: Male

DRUGS (3)
  1. MANINIL [Concomitant]
     Active Substance: GLYBURIDE
  2. METFORMIN [Concomitant]
     Active Substance: METFORMIN HYDROCHLORIDE
  3. FORXIGA [Suspect]
     Active Substance: DAPAGLIFLOZIN
     Indication: TYPE 2 DIABETES MELLITUS
     Route: 048

REACTIONS (3)
  - Blood glucose increased [Not Recovered/Not Resolved]
  - Pallor [Not Recovered/Not Resolved]
  - Ketoacidosis [Not Recovered/Not Resolved]
